FAERS Safety Report 10528439 (Version 1)
Quarter: 2014Q4

REPORT INFORMATION
  Report Type: Spontaneous
  Country: US (occurrence: None)
  Receive Date: 20141017
  Receipt Date: 20141017
  Transmission Date: 20150528
  Serious: No
  Sender: FDA-Public Use
  Company Number: None

PATIENT
  Age: 31 Year
  Sex: Female
  Weight: 70.31 kg

DRUGS (1)
  1. CEPHALEXIN. [Suspect]
     Active Substance: CEPHALEXIN
     Indication: SURGERY
     Dosage: TAKEN BY MOUTH

REACTIONS (9)
  - Diarrhoea [None]
  - Pyrexia [None]
  - Dehydration [None]
  - Contusion [None]
  - Nausea [None]
  - Rash [None]
  - Fatigue [None]
  - Decreased appetite [None]
  - Asthenia [None]

NARRATIVE: CASE EVENT DATE: 20141010
